FAERS Safety Report 5382971-2 (Version None)
Quarter: 2007Q3

REPORT INFORMATION
  Report Type: 
  Country: None (occurrence: None)
  Receive Date: 20070710
  Receipt Date: 20070703
  Transmission Date: 20080115
  Serious: Yes (Other)
  Sender: FDA-Public Use
  Company Number: A0662316A

PATIENT
  Age: 12 Year
  Sex: Female

DRUGS (1)
  1. ZANTAC [Suspect]
     Indication: DRUG USE FOR UNKNOWN INDICATION
     Dosage: 1U PER DAY
     Route: 048

REACTIONS (4)
  - AFFECT LABILITY [None]
  - MEDICATION ERROR [None]
  - PERSONALITY CHANGE [None]
  - SELF-INJURIOUS IDEATION [None]
